FAERS Safety Report 10559585 (Version 1)
Quarter: 2014Q4

REPORT INFORMATION
  Report Type: Spontaneous
  Country: US (occurrence: None)
  Receive Date: 20141031
  Receipt Date: 20141031
  Transmission Date: 20150529
  Serious: Yes (Disabling)
  Sender: FDA-Public Use
  Company Number: None

PATIENT
  Age: 58 Year
  Sex: Male
  Weight: 83.92 kg

DRUGS (2)
  1. KLONOPIN [Suspect]
     Active Substance: CLONAZEPAM
     Indication: INSOMNIA
     Route: 048
     Dates: start: 20080315, end: 20130215
  2. ATIVAN [Suspect]
     Active Substance: LORAZEPAM
     Indication: INSOMNIA
     Route: 048
     Dates: start: 20130216, end: 20140115

REACTIONS (15)
  - Depression [None]
  - Confusional state [None]
  - Fatigue [None]
  - Insomnia [None]
  - Drug withdrawal syndrome [None]
  - Tremor [None]
  - Headache [None]
  - Panic attack [None]
  - Anger [None]
  - Emotional disorder [None]
  - Hallucination [None]
  - Palpitations [None]
  - Burning sensation [None]
  - Anxiety [None]
  - Muscle twitching [None]

NARRATIVE: CASE EVENT DATE: 20140115
